FAERS Safety Report 23489285 (Version 6)
Quarter: 2025Q4

REPORT INFORMATION
  Report Type: Spontaneous
  Country: US (occurrence: US)
  Receive Date: 20240206
  Receipt Date: 20251219
  Transmission Date: 20260118
  Serious: Yes (Other)
  Sender: ROCHE
  Company Number: US-ROCHE-3323665

PATIENT
  Age: 58 Year
  Sex: Female
  Weight: 85.28 kg

DRUGS (4)
  1. XOLAIR [Suspect]
     Active Substance: OMALIZUMAB
     Indication: Asthma
     Dosage: 300 MG/2ML
     Route: 058
     Dates: start: 202302
  2. XOLAIR [Suspect]
     Active Substance: OMALIZUMAB
     Dosage: 150 MG/ML
     Route: 058
     Dates: start: 202302
  3. TAKHZYRO PFS [Concomitant]
  4. ANDEMBRY AUTOINJECTOR PF [Concomitant]

REACTIONS (20)
  - Ill-defined disorder [Unknown]
  - Eye swelling [Unknown]
  - Genital swelling [Unknown]
  - Mouth swelling [Unknown]
  - Lip swelling [Unknown]
  - Swelling face [Unknown]
  - Swollen tongue [Unknown]
  - Peripheral swelling [Unknown]
  - Abdominal distension [Unknown]
  - Swelling [Unknown]
  - Pharyngeal swelling [Unknown]
  - Oral disorder [Unknown]
  - Pharyngeal disorder [Unknown]
  - Wheezing [Unknown]
  - Reproductive tract disorder [Unknown]
  - Gastrointestinal disorder [Unknown]
  - Swelling [Unknown]
  - Swelling face [Unknown]
  - Weight increased [Unknown]
  - Laryngeal oedema [Unknown]

NARRATIVE: CASE EVENT DATE: 20230325
